FAERS Safety Report 7535896-8 (Version None)
Quarter: 2011Q2

REPORT INFORMATION
  Report Type: 
  Country: None (occurrence: None)
  Receive Date: 20110607
  Receipt Date: 20110607
  Transmission Date: 20111010
  Serious: Yes (Other)
  Sender: FDA-Public Use
  Company Number: None

PATIENT
  Age: 74 Year
  Sex: Female
  Weight: 77.1115 kg

DRUGS (1)
  1. ZOMETA [Suspect]

REACTIONS (8)
  - EYELID DISORDER [None]
  - LOCAL SWELLING [None]
  - THROMBOSIS [None]
  - MYDRIASIS [None]
  - ABSCESS ORAL [None]
  - OSTEOMYELITIS [None]
  - MEDICAL DEVICE COMPLICATION [None]
  - MOUTH ULCERATION [None]
